FAERS Safety Report 4738237-4 (Version None)
Quarter: 2005Q3

REPORT INFORMATION
  Report Type: 
  Country: None (occurrence: None)
  Receive Date: 20050803
  Receipt Date: 20050726
  Transmission Date: 20060218
  Serious: Yes (Disabling)
  Sender: FDA-Public Use
  Company Number: 2005-130347-NL

PATIENT
  Age: 57 Year
  Sex: Male

DRUGS (6)
  1. MIRTAZAPINE [Suspect]
     Indication: DEPRESSION
     Dosage: DF/30 MG QD/45 MG QD ORAL
     Route: 048
     Dates: start: 20030828, end: 20030917
  2. MIRTAZAPINE [Suspect]
     Indication: DEPRESSION
     Dosage: DF/30 MG QD/45 MG QD ORAL
     Route: 048
     Dates: start: 20040101, end: 20040715
  3. MIRTAZAPINE [Suspect]
     Indication: DEPRESSION
     Dosage: DF/30 MG QD/45 MG QD ORAL
     Route: 048
     Dates: start: 20040116
  4. CLOMIPRAMINE HCL [Concomitant]
  5. ALPRAZOLAM [Concomitant]
  6. CLONAZEPAM [Concomitant]

REACTIONS (3)
  - CONDITION AGGRAVATED [None]
  - DRUG INEFFECTIVE [None]
  - TARDIVE DYSKINESIA [None]
